FAERS Safety Report 6781269-5 (Version None)
Quarter: 2010Q2

REPORT INFORMATION
  Report Type: 
  Country: None (occurrence: None)
  Receive Date: 20100621
  Receipt Date: 20100608
  Transmission Date: 20101027
  Serious: Yes (Other)
  Sender: FDA-Public Use
  Company Number: PHFR2004GB01292

PATIENT
  Sex: Male
  Weight: 69.7 kg

DRUGS (5)
  1. CLOZARIL [Suspect]
     Indication: SCHIZOPHRENIA
     Route: 048
     Dates: start: 20011009
  2. CLOZARIL [Suspect]
     Dosage: 650MG/DAY
     Dates: end: 20040303
  3. VALPROATE SODIUM [Concomitant]
     Dosage: 1G/DAY
     Route: 048
     Dates: start: 20030101
  4. ACETAMINOPHEN [Concomitant]
  5. AMISULPRIDE [Concomitant]
     Indication: SCHIZOPHRENIA
     Dosage: 800MG/DAY
     Route: 048
     Dates: start: 20030101, end: 20031101

REACTIONS (4)
  - ELECTROENCEPHALOGRAM ABNORMAL [None]
  - GRAND MAL CONVULSION [None]
  - NEUTROPENIA [None]
  - VIRAL INFECTION [None]
